FAERS Safety Report 8008377-5 (Version None)
Quarter: 2011Q4

REPORT INFORMATION
  Report Type: 
  Country: None (occurrence: None)
  Receive Date: 20111227
  Receipt Date: 20111219
  Transmission Date: 20120403
  Serious: Yes (Other)
  Sender: FDA-Public Use
  Company Number: ZA-ROCHE-1024756

PATIENT
  Sex: Female

DRUGS (3)
  1. ISOTRETINOIN [Suspect]
     Indication: HYPERSENSITIVITY
     Route: 065
  2. ISOTRETINOIN [Suspect]
     Route: 065
  3. LATANOPROST [Concomitant]
     Indication: ABNORMAL SENSATION IN EYE

REACTIONS (1)
  - BLINDNESS [None]
